FAERS Safety Report 12650470 (Version 3)
Quarter: 2017Q1

REPORT INFORMATION
  Report Type: Spontaneous
  Country: US (occurrence: US)
  Receive Date: 20160815
  Receipt Date: 20170110
  Transmission Date: 20170428
  Serious: Yes (Other)
  Sender: FDA-Public Use
  Company Number: US-ROCHE-1756634

PATIENT
  Sex: Male

DRUGS (2)
  1. XELODA [Suspect]
     Active Substance: CAPECITABINE
     Indication: COLON CANCER
     Dosage: TWICE DAILY FOR 7 DAYS OFF FOR 7 DAYS AND REPEAT
     Route: 048
     Dates: start: 20160324
  2. XELODA [Suspect]
     Active Substance: CAPECITABINE
     Dosage: 3 TABS, 2X A DAY FOR 7 DAYS ON AND 7 DAYS OFF
     Route: 048

REACTIONS (6)
  - Somnolence [Unknown]
  - Haemorrhage [Unknown]
  - Dental caries [Unknown]
  - Fatigue [Not Recovered/Not Resolved]
  - Fatigue [Unknown]
  - Impaired healing [Not Recovered/Not Resolved]
